FAERS Safety Report 7759026-2 (Version None)
Quarter: 2011Q3

REPORT INFORMATION
  Report Type: 
  Country: None (occurrence: None)
  Receive Date: 20110919
  Receipt Date: 20110915
  Transmission Date: 20111222
  Serious: Yes (Hospitalization, Disabling)
  Sender: FDA-Public Use
  Company Number: JP-BRISTOL-MYERS SQUIBB COMPANY-15396716

PATIENT
  Age: 73 Year
  Sex: Female

DRUGS (16)
  1. PREDNISOLONE [Suspect]
     Indication: RHEUMATOID ARTHRITIS
     Route: 048
  2. CLOPIDOGREL BISULFATE [Concomitant]
     Dates: start: 20091122
  3. BISOPROLOL FUMARATE [Concomitant]
     Dates: start: 20100128
  4. ORENCIA [Suspect]
     Indication: RHEUMATOID ARTHRITIS
     Route: 042
     Dates: start: 20100921
  5. METHOTREXATE [Suspect]
  6. SELBEX [Concomitant]
  7. GAMOFA [Concomitant]
     Dosage: GAMOFA D
  8. PROGRAF [Suspect]
  9. ROSUVASTATIN [Concomitant]
  10. VITAMIN B-12 [Concomitant]
     Dates: start: 20100321
  11. LANSOPRAZOLE [Concomitant]
  12. RAMIPRIL [Concomitant]
  13. CARDILOL [Concomitant]
     Dates: start: 20100127
  14. VOLTAREN [Suspect]
  15. METHYCOOL [Concomitant]
  16. FOLIC ACID [Concomitant]

REACTIONS (3)
  - ANAEMIA [None]
  - ALOPECIA [None]
  - GASTRIC ULCER [None]
